FAERS Safety Report 6690684-X (Version None)
Quarter: 2010Q2

REPORT INFORMATION
  Report Type: 
  Country: None (occurrence: None)
  Receive Date: 20100421
  Receipt Date: 20100203
  Transmission Date: 20101027
  Serious: No
  Sender: FDA-Public Use
  Company Number: US-BRISTOL-MYERS SQUIBB COMPANY-14965040

PATIENT
  Sex: Female

DRUGS (1)
  1. HYDREA [Suspect]

REACTIONS (3)
  - INFLUENZA LIKE ILLNESS [None]
  - OROPHARYNGEAL BLISTERING [None]
  - SINUS CONGESTION [None]
